FAERS Safety Report 6253535-3 (Version None)
Quarter: 2009Q3

REPORT INFORMATION
  Report Type: 
  Country: None (occurrence: None)
  Receive Date: 20090701
  Receipt Date: 20090629
  Transmission Date: 20100115
  Serious: Yes (Other)
  Sender: FDA-Public Use
  Company Number: US-AMGEN-KDL345313

PATIENT
  Sex: Female
  Weight: 54.5 kg

DRUGS (6)
  1. PROCRIT [Suspect]
     Indication: ANAEMIA OF MALIGNANT DISEASE
     Route: 065
     Dates: start: 19980101
  2. ARANESP [Suspect]
     Indication: ANAEMIA OF MALIGNANT DISEASE
     Route: 065
     Dates: start: 20070101
  3. CISPLATIN [Concomitant]
  4. ADRIAMYCIN RDF [Concomitant]
  5. IFOSFAMIDE [Concomitant]
  6. METHOTREXATE [Concomitant]

REACTIONS (3)
  - BONE MARROW FAILURE [None]
  - CARDIOTOXICITY [None]
  - RENAL FAILURE CHRONIC [None]
